FAERS Safety Report 17222182 (Version 1)
Quarter: 2020Q1

REPORT INFORMATION
  Report Type: Spontaneous
  Country: DE (occurrence: DE)
  Receive Date: 20200101
  Receipt Date: 20200101
  Transmission Date: 20200409
  Serious: Yes (Hospitalization)
  Sender: FDA-Public Use
  Company Number: DE-TEVA-2019-DE-1158897

PATIENT
  Age: 74 Year
  Sex: Female

DRUGS (15)
  1. ALISKIREN [Suspect]
     Active Substance: ALISKIREN
     Dosage: 150 MG
     Route: 048
  2. SIMVASTATIN. [Concomitant]
     Active Substance: SIMVASTATIN
     Dosage: 20 MG
     Route: 048
  3. HYDROCHLOROTHIAZIDE. [Suspect]
     Active Substance: HYDROCHLOROTHIAZIDE
     Dosage: 25 MG
     Route: 048
  4. SALBUTAMOL [Concomitant]
     Active Substance: ALBUTEROL
     Dosage: 1.25 MG
     Route: 055
  5. DABIGATRAN [Concomitant]
     Active Substance: DABIGATRAN
     Dosage: 150 MG
     Route: 048
  6. PROPAFENON [Concomitant]
     Active Substance: PROPAFENONE
     Dosage: 150 MG
     Route: 048
  7. MONTELUKAST [Concomitant]
     Active Substance: MONTELUKAST SODIUM
     Dosage: 10 MG
     Route: 048
  8. RISEDRONS?URE [Concomitant]
     Dosage: 35 MG
     Route: 048
  9. METAMIZOL [Concomitant]
     Active Substance: METAMIZOLE SODIUM
     Dosage: 500 MG
     Route: 048
  10. TOLTERODIN [Concomitant]
     Active Substance: TOLTERODINE TARTRATE
     Dosage: 2 MG
     Route: 048
  11. AMLODIPIN [Concomitant]
     Active Substance: AMLODIPINE BESYLATE
     Dosage: 5 MG
     Route: 048
  12. BUDESONIDE W/FORMOTEROL [Concomitant]
     Active Substance: BUDESONIDE\FORMOTEROL
     Dosage: 9.83|400 ?G, 1-1-1-0, DOSIERAEROSOL
     Route: 055
  13. TORASEMIDE [Suspect]
     Active Substance: TORSEMIDE
     Dosage: 10 MG
     Route: 048
  14. PANTOPRAZOL [Concomitant]
     Active Substance: PANTOPRAZOLE SODIUM
     Dosage: 20 MG
     Route: 048
  15. TIOTROPIUMBROMID [Concomitant]
     Dosage: 2.5 ?G
     Route: 055

REACTIONS (3)
  - Abdominal distension [Unknown]
  - General physical health deterioration [Unknown]
  - Vomiting [Unknown]
